FAERS Safety Report 7022056 (Version 2)
Quarter: 2012Q4

REPORT INFORMATION
  Report Type: Report from Study
  Country: US (occurrence: US)
  Receive Date: 20090612
  Receipt Date: 20121116
  Transmission Date: 20130627
  Serious: Yes (Other)
  Sender: FDA-Public Use
  Company Number: US-JNJFOC-20090602950

PATIENT
  Age: 0 Month
  Sex: Male

DRUGS (8)
  1. CISAPRIDE [Suspect]
     Route: 048
  2. CISAPRIDE [Suspect]
     Indication: OBSTRUCTION
     Route: 048
     Dates: end: 20090115
  3. GLYCERINE [Concomitant]
     Indication: CONSTIPATION
     Route: 054
  4. ACETAMINOPHEN [Concomitant]
     Indication: PAIN MANAGEMENT
     Route: 054
  5. ZANTAC [Concomitant]
     Indication: GASTROOESOPHAGEAL REFLUX DISEASE
     Route: 065
     Dates: start: 20081215
  6. FERROUS SULPHATE [Concomitant]
     Indication: IRON DEFICIENCY
     Route: 065
     Dates: start: 20081215
  7. HYDROCORTISONE [Concomitant]
     Indication: ECZEMA
     Route: 065
  8. REGLAN [Concomitant]
     Indication: GASTROINTESTINAL MOTILITY DISORDER
     Route: 065

REACTIONS (1)
  - Electrocardiogram QT prolonged [Recovered/Resolved]
